FAERS Safety Report 8158242-8 (Version None)
Quarter: 2012Q1

REPORT INFORMATION
  Report Type: 
  Country: None (occurrence: None)
  Receive Date: 20120223
  Receipt Date: 20120216
  Transmission Date: 20120608
  Serious: Yes (Hospitalization, Disabling)
  Sender: FDA-Public Use
  Company Number: DE-BIOGENIDEC-2011BI040058

PATIENT
  Age: 31 Year
  Sex: Female
  Weight: 60 kg

DRUGS (3)
  1. TYSABRI [Suspect]
     Indication: MULTIPLE SCLEROSIS
     Route: 042
     Dates: start: 20080602
  2. AMANTADINE HCL [Concomitant]
     Indication: FATIGUE
     Dates: start: 20110901
  3. DULOXETIN [Concomitant]
     Indication: DEPRESSION

REACTIONS (1)
  - MIGRAINE [None]
